FAERS Safety Report 12143610 (Version 1)
Quarter: 2016Q1

REPORT INFORMATION
  Report Type: Spontaneous
  Country: GB (occurrence: GB)
  Receive Date: 20160304
  Receipt Date: 20160304
  Transmission Date: 20160526
  Serious: Yes (Life-Threatening, Hospitalization, Other)
  Sender: FDA-Public Use
  Company Number: GB-ACCORD-038296

PATIENT
  Age: 75 Year
  Sex: Male

DRUGS (11)
  1. WARFARIN [Concomitant]
     Active Substance: WARFARIN
  2. RAMIPRIL. [Suspect]
     Active Substance: RAMIPRIL
     Indication: HYPERTENSION
     Route: 048
     Dates: end: 20160210
  3. EPLERENONE. [Suspect]
     Active Substance: EPLERENONE
     Indication: MYOCARDIAL ISCHAEMIA
     Dosage: IN THE MORNING
     Route: 048
  4. ACETYLSALICYLIC ACID [Concomitant]
     Active Substance: ASPIRIN
  5. BISOPROLOL [Concomitant]
     Active Substance: BISOPROLOL
  6. SALBUTAMOL [Concomitant]
     Active Substance: ALBUTEROL
     Route: 055
  7. TIOTROPIUM [Concomitant]
     Active Substance: TIOTROPIUM
  8. ATORVASTATIN/ATORVASTATIN CALCIUM [Concomitant]
  9. FLUTICASONE PROPIONATE/SALMETEROL XINAFOATE [Concomitant]
     Dosage: 500/50
     Route: 055
  10. FUROSEMIDE. [Concomitant]
     Active Substance: FUROSEMIDE
  11. OMEPRAZOLE. [Concomitant]
     Active Substance: OMEPRAZOLE

REACTIONS (2)
  - Ventricular tachycardia [Recovering/Resolving]
  - Hyperkalaemia [Recovering/Resolving]

NARRATIVE: CASE EVENT DATE: 20150210
